FAERS Safety Report 9568309 (Version 1)
Quarter: 2013Q3

REPORT INFORMATION
  Report Type: Spontaneous
  Country: US (occurrence: US)
  Receive Date: 20130930
  Receipt Date: 20130930
  Transmission Date: 20140515
  Serious: No
  Sender: FDA-Public Use
  Company Number: US-AMGEN-USASP2013052800

PATIENT
  Age: 32 Year
  Sex: Male
  Weight: 108.84 kg

DRUGS (7)
  1. ENBREL [Suspect]
     Indication: PRODUCT USED FOR UNKNOWN INDICATION
     Dosage: 50 MG, 2 TIMES/WK
     Route: 058
  2. PROZAC [Concomitant]
     Dosage: 40 MG, UNK
  3. LIPITOR [Concomitant]
     Dosage: 10 MG, UNK
  4. BENTYL [Concomitant]
     Dosage: 20 MG, UNK
  5. VALIUM                             /00017001/ [Concomitant]
     Dosage: 10 MG, UNK
  6. MULTIVITAMINS, PLAIN [Concomitant]
     Dosage: UNK
  7. IBUPROFEN [Concomitant]
     Dosage: UNK

REACTIONS (1)
  - Psoriasis [Unknown]
